FAERS Safety Report 6451127-4 (Version None)
Quarter: 2009Q4

REPORT INFORMATION
  Report Type: 
  Country: None (occurrence: None)
  Receive Date: 20091123
  Receipt Date: 20091111
  Transmission Date: 20100525
  Serious: Yes (Hospitalization, Other)
  Sender: FDA-Public Use
  Company Number: CA-PFIZER INC-2009279745

PATIENT
  Age: 33 Year
  Sex: Female
  Weight: 65.3 kg

DRUGS (8)
  1. SUNITINIB MALATE [Suspect]
     Indication: NON-SMALL CELL LUNG CANCER
     Dosage: 37.5 MG, 1X/DAY, 2/1 SCHEDULE
     Route: 048
     Dates: start: 20090918
  2. PEMETREXED [Suspect]
     Indication: NON-SMALL CELL LUNG CANCER
     Dosage: 866 MG, CYCLIC, EVERY 3 WEEKS
     Route: 042
     Dates: start: 20090917
  3. CISPLATIN [Suspect]
     Indication: NON-SMALL CELL LUNG CANCER
     Dosage: 130 MG, CYCLIC, EVERY 3 WEEKS
     Route: 042
     Dates: start: 20090917
  4. FOLIC ACID [Concomitant]
     Indication: PROPHYLAXIS
     Dosage: 5 MG, 1X/DAY
     Dates: start: 20090909
  5. VITAMIN B-12 [Concomitant]
     Indication: PROPHYLAXIS
     Dosage: 1 MG, CYCLIC, EVERY 9 WEEKS
     Dates: start: 20090908
  6. SERAX [Concomitant]
     Indication: INSOMNIA
     Dosage: 15 MG, 1X/DAY
     Dates: start: 20090911
  7. HYCODAN [Concomitant]
     Indication: COUGH
     Dosage: 5 MG, EVERY 4 HRS
     Dates: start: 20090908
  8. CODEINE [Concomitant]
     Indication: COUGH
     Dosage: 30 MG, EVERY 4 HRS
     Dates: start: 20090908

REACTIONS (1)
  - FEBRILE NEUTROPENIA [None]
